FAERS Safety Report 7796223-4 (Version None)
Quarter: 2011Q4

REPORT INFORMATION
  Report Type: 
  Country: None (occurrence: None)
  Receive Date: 20111004
  Receipt Date: 20111004
  Transmission Date: 20120403
  Serious: Yes (Death)
  Sender: FDA-Public Use
  Company Number: BR-ABBOTT-11P-020-0859874-00

PATIENT
  Sex: Male
  Weight: 89 kg

DRUGS (3)
  1. GLYBURIDE [Concomitant]
     Indication: DIABETES MELLITUS
     Route: 048
  2. ENALAPRIL MALEATE [Concomitant]
     Indication: HYPERTENSION
     Route: 048
  3. HUMIRA [Suspect]
     Indication: RHEUMATOID ARTHRITIS
     Route: 058
     Dates: start: 20091126

REACTIONS (8)
  - SUDDEN CARDIAC DEATH [None]
  - MYOCARDIAL INFARCTION [None]
  - DIABETES MELLITUS [None]
  - CONGESTIVE CARDIOMYOPATHY [None]
  - INCORRECT DOSE ADMINISTERED [None]
  - ARTERIOSCLEROSIS [None]
  - HYPERTENSION [None]
  - MYOCARDIAL ISCHAEMIA [None]
